FAERS Safety Report 10183108 (Version 1)
Quarter: 2014Q2

REPORT INFORMATION
  Report Type: Spontaneous
  Country: US (occurrence: US)
  Receive Date: 20140520
  Receipt Date: 20140520
  Transmission Date: 20141212
  Serious: Yes (Hospitalization)
  Sender: FDA-Public Use
  Company Number: US-SUN PHARMACEUTICAL INDUSTRIES LTD-2014SUN01067

PATIENT
  Age: 41 Year
  Sex: Male

DRUGS (2)
  1. DOXYCYCLINE HYCLATE CAPSULES, USP 50 MG [Suspect]
     Indication: LEPTOSPIROSIS
     Route: 065
  2. PIPERACILLIN/TAZOBACTUM [Suspect]
     Indication: LEPTOSPIROSIS
     Route: 065

REACTIONS (2)
  - Acute respiratory distress syndrome [Recovering/Resolving]
  - Jarisch-Herxheimer reaction [Recovering/Resolving]
